FAERS Safety Report 9240487 (Version 2)
Quarter: 2013Q2

REPORT INFORMATION
  Report Type: Spontaneous
  Country: US (occurrence: None)
  Receive Date: 20130417
  Receipt Date: 20130606
  Transmission Date: 20140414
  Serious: Yes (Hospitalization)
  Sender: FDA-Public Use
  Company Number: JPI-P-031072

PATIENT
  Age: 53 Year
  Sex: Female
  Weight: 86.18 kg

DRUGS (9)
  1. XYREM (500 MILLIGRAM/MILLILITERS, SOLUTION) (SODIUM OXYBATE) [Suspect]
     Indication: INSOMNIA
     Dosage: 4.5 GM (2.25 GM, 2 IN 1 D), ORAL
     Route: 048
     Dates: start: 20031016
  2. CLONAZEPAM [Concomitant]
  3. RESTASIS [Concomitant]
  4. LEVOTHYROXINE [Concomitant]
  5. METHADONE [Concomitant]
  6. AZELAIC ACID (FINACEA) [Concomitant]
  7. TRETINOIN [Concomitant]
  8. OLOPATADINE HYDROCHLORIDE [Concomitant]
  9. GABAPENTIN [Concomitant]

REACTIONS (13)
  - Fall [None]
  - Feeling abnormal [None]
  - Head injury [None]
  - Insomnia [None]
  - Contusion [None]
  - Hypercapnia [None]
  - Hypoxia [None]
  - Overdose [None]
  - Respiratory failure [None]
  - Injury [None]
  - Hypokalaemia [None]
  - Hypertension [None]
  - Crying [None]
